FAERS Safety Report 15786779 (Version 1)
Quarter: 2019Q1

REPORT INFORMATION
  Report Type: Spontaneous
  Country: GR (occurrence: GR)
  Receive Date: 20190103
  Receipt Date: 20190103
  Transmission Date: 20190417
  Serious: Yes (Hospitalization, Other)
  Sender: FDA-Public Use
  Company Number: GR-009507513-1812GRC012668

PATIENT
  Age: 60 Year
  Sex: Female

DRUGS (1)
  1. ZEPATIER [Suspect]
     Active Substance: ELBASVIR\GRAZOPREVIR
     Dosage: UNK
     Route: 048
     Dates: start: 201811

REACTIONS (2)
  - Strangulated hernia [Recovered/Resolved]
  - Cardiac output decreased [Unknown]

NARRATIVE: CASE EVENT DATE: 2018
